FAERS Safety Report 19456644 (Version 1)
Quarter: 2021Q2

REPORT INFORMATION
  Report Type: Spontaneous
  Country: US (occurrence: US)
  Receive Date: 20210624
  Receipt Date: 20210624
  Transmission Date: 20210717
  Serious: Yes (Other)
  Sender: FDA-Public Use
  Company Number: US-STRIDES ARCOLAB LIMITED-2020SP005981

PATIENT
  Age: 36 Year
  Sex: Female

DRUGS (2)
  1. HYDRALAZINE HCL [Suspect]
     Active Substance: HYDRALAZINE HYDROCHLORIDE
     Indication: HYPERTENSION
     Dosage: 10 MILLIGRAM PER DAY
     Route: 065
  2. HYDRALAZINE HCL [Suspect]
     Active Substance: HYDRALAZINE HYDROCHLORIDE
     Dosage: 60 MILLIGRAM PER DAY (DOSE INCREASED)
     Route: 065

REACTIONS (21)
  - Lupus-like syndrome [Recovered/Resolved]
  - Mouth ulceration [Recovered/Resolved]
  - Pleurisy [Recovered/Resolved]
  - Rash [Recovered/Resolved]
  - Pleuritic pain [Recovered/Resolved]
  - Erythema [Recovered/Resolved]
  - Arthralgia [Recovered/Resolved]
  - Swelling [Recovered/Resolved]
  - Pain [Recovered/Resolved]
  - Musculoskeletal stiffness [Recovered/Resolved]
  - Chest pain [Recovered/Resolved]
  - Myalgia [Recovered/Resolved]
  - Joint range of motion decreased [Recovered/Resolved]
  - Intervertebral disc degeneration [Recovered/Resolved]
  - Gait disturbance [Recovered/Resolved]
  - Asthenia [Recovered/Resolved]
  - Joint swelling [Recovered/Resolved]
  - Pruritus [Recovered/Resolved]
  - Fatigue [Recovered/Resolved]
  - Ageusia [Recovered/Resolved]
  - Dry eye [Recovered/Resolved]
